FAERS Safety Report 18790752 (Version 3)
Quarter: 2021Q1

REPORT INFORMATION
  Report Type: Spontaneous
  Country: US (occurrence: US)
  Receive Date: 20210126
  Receipt Date: 20210202
  Transmission Date: 20210419
  Serious: No
  Sender: FDA-Public Use
  Company Number: US-PFIZER INC-2021051260

PATIENT
  Age: 56 Year
  Sex: Male
  Weight: 112.49 kg

DRUGS (1)
  1. VENLAFAXINE HCL [Suspect]
     Active Substance: VENLAFAXINE HYDROCHLORIDE
     Indication: DEPRESSION
     Dosage: 300 MG, 1X/DAY
     Route: 048

REACTIONS (4)
  - Illness [Unknown]
  - Impaired driving ability [Recovering/Resolving]
  - Withdrawal syndrome [Unknown]
  - Dizziness [Recovering/Resolving]
